FAERS Safety Report 21477638 (Version 1)
Quarter: 2022Q4

REPORT INFORMATION
  Report Type: Report from Study
  Country: FR (occurrence: FR)
  Receive Date: 20221019
  Receipt Date: 20221019
  Transmission Date: 20230112
  Serious: Yes (Hospitalization)
  Sender: FDA-Public Use
  Company Number: FR-Merz Pharmaceuticals GmbH-22-03115

PATIENT
  Age: 60 Year
  Sex: Male
  Weight: 108 kg

DRUGS (2)
  1. XEOMIN [Suspect]
     Active Substance: INCOBOTULINUMTOXINA
     Indication: Arrhythmia prophylaxis
     Route: 016
     Dates: start: 20210126, end: 20210126
  2. PLACEBO [Concomitant]
     Active Substance: UNSPECIFIED INGREDIENT
     Indication: Arrhythmia prophylaxis
     Route: 016
     Dates: start: 20210126, end: 20210126

REACTIONS (1)
  - Respiratory failure [Recovered/Resolved]

NARRATIVE: CASE EVENT DATE: 20210126
